FAERS Safety Report 10520171 (Version 8)
Quarter: 2015Q2

REPORT INFORMATION
  Report Type: Spontaneous
  Country: US (occurrence: US)
  Receive Date: 20141015
  Receipt Date: 20150505
  Transmission Date: 20150821
  Serious: Yes (Hospitalization, Other)
  Sender: FDA-Public Use
  Company Number: US-PFIZER INC-2014281714

PATIENT
  Age: 64 Year
  Sex: Female
  Weight: 118 kg

DRUGS (4)
  1. XELJANZ [Suspect]
     Active Substance: TOFACITINIB CITRATE
     Indication: RHEUMATOID ARTHRITIS
     Dosage: 5 MG, 2X/DAY
     Route: 048
     Dates: start: 20140723, end: 20141009
  2. PREDNISONE. [Concomitant]
     Active Substance: PREDNISONE
     Indication: RHEUMATOID ARTHRITIS
     Dosage: 10 MG, DAILY
  3. SYNTHROID [Concomitant]
     Active Substance: LEVOTHYROXINE SODIUM
     Dosage: UNK
  4. TRAMADOL [Concomitant]
     Active Substance: TRAMADOL
     Indication: PAIN
     Dosage: 50 MG, AS NEEDED

REACTIONS (12)
  - Anorectal discomfort [Recovered/Resolved]
  - Drug ineffective [Recovered/Resolved]
  - Gallbladder disorder [Recovered/Resolved]
  - Hyperhidrosis [Recovered/Resolved]
  - Abdominal pain upper [Unknown]
  - Sinusitis [Recovered/Resolved]
  - Hepatic steatosis [Not Recovered/Not Resolved]
  - Dry eye [Recovered/Resolved]
  - Eye infection bacterial [Recovered/Resolved]
  - Abdominal distension [Recovered/Resolved]
  - Product quality issue [Recovered/Resolved]
  - Bowel movement irregularity [Recovered/Resolved]

NARRATIVE: CASE EVENT DATE: 201409
